FAERS Safety Report 8171723-6 (Version None)
Quarter: 2012Q1

REPORT INFORMATION
  Report Type: 
  Country: None (occurrence: None)
  Receive Date: 20120228
  Receipt Date: 20120223
  Transmission Date: 20120608
  Serious: Yes (Life-Threatening)
  Sender: FDA-Public Use
  Company Number: US-INCYTE CORPORATION-2012IN000260

PATIENT
  Sex: Male

DRUGS (2)
  1. ALLOPURINOL [Concomitant]
     Dosage: 300 MG, QD
     Route: 048
  2. JAKAFI [Suspect]
     Indication: MYELOFIBROSIS
     Dosage: 20 MG, BID
     Route: 048

REACTIONS (2)
  - PLATELET COUNT DECREASED [None]
  - HAEMORRHAGE [None]
